FAERS Safety Report 7436275-4 (Version None)
Quarter: 2011Q2

REPORT INFORMATION
  Report Type: 
  Country: None (occurrence: None)
  Receive Date: 20110426
  Receipt Date: 20110414
  Transmission Date: 20111010
  Serious: Yes (Hospitalization)
  Sender: FDA-Public Use
  Company Number: US-US-EMD SERONO, INC.-7052805

PATIENT
  Sex: Male

DRUGS (14)
  1. LISINOPRIL [Concomitant]
  2. TRICOR [Concomitant]
  3. JANUVIA [Concomitant]
  4. METFORMIN [Concomitant]
  5. ACTOS [Concomitant]
  6. ADVAIR DISKUS 100/50 [Concomitant]
  7. PRILOSEC OTC [Concomitant]
  8. AMOXICILLIN AND CLAVULANATE POTASSIUM [Concomitant]
  9. REBIF [Suspect]
     Indication: MULTIPLE SCLEROSIS
     Route: 058
     Dates: start: 20110326, end: 20110326
  10. AMLODIPINE BESYLATE [Concomitant]
  11. PREDNISONE [Concomitant]
  12. FLUCONAZOLE [Concomitant]
  13. GLIPIZIDE [Concomitant]
  14. ASPIRIN [Concomitant]

REACTIONS (4)
  - BLOOD BILIRUBIN INCREASED [None]
  - LIVER FUNCTION TEST ABNORMAL [None]
  - INFLUENZA LIKE ILLNESS [None]
  - PANCREATITIS [None]
